FAERS Safety Report 17238099 (Version 1)
Quarter: 2020Q1

REPORT INFORMATION
  Report Type: Spontaneous
  Country: US (occurrence: US)
  Receive Date: 20200106
  Receipt Date: 20200106
  Transmission Date: 20200409
  Serious: No
  Sender: FDA-Public Use
  Company Number: US-PACIRA-201900265

PATIENT
  Age: 58 Year
  Sex: Female
  Weight: 104 kg

DRUGS (2)
  1. EXPAREL [Suspect]
     Active Substance: BUPIVACAINE
     Indication: NERVE BLOCK
     Dosage: 133 MG/10 ML AND BUPIVACAINE WITH EPI 20 ML
     Route: 065
  2. BUPIVACAINE WITH EPI [Concomitant]
     Indication: NERVE BLOCK
     Dosage: BUPIVACAINE 0.25% WITH EPINEPHRINE; 2ML SQ PRIOR TO BLOCK AND 20 ML BLOCK
     Route: 058

REACTIONS (1)
  - Therapeutic response shortened [Unknown]
